FAERS Safety Report 19656700 (Version 3)
Quarter: 2022Q2

REPORT INFORMATION
  Report Type: Report from Study
  Country: US (occurrence: US)
  Receive Date: 20210804
  Receipt Date: 20220613
  Transmission Date: 20220720
  Serious: No
  Sender: FDA-Public Use
  Company Number: US-PFIZER INC-2021751297

PATIENT
  Age: 53 Year
  Sex: Female

DRUGS (1)
  1. LORBRENA [Suspect]
     Active Substance: LORLATINIB
     Dosage: 100 MG, 1X/DAY
     Dates: start: 20210614

REACTIONS (4)
  - Fatigue [Not Recovered/Not Resolved]
  - Face oedema [Not Recovered/Not Resolved]
  - Dysarthria [Not Recovered/Not Resolved]
  - Speech disorder [Not Recovered/Not Resolved]

NARRATIVE: CASE EVENT DATE: 20210619
